FAERS Safety Report 9065190 (Version 1)
Quarter: 2013Q1

REPORT INFORMATION
  Report Type: Report from Study
  Country: US (occurrence: US)
  Receive Date: 20130130
  Receipt Date: 20130130
  Transmission Date: 20140127
  Serious: No
  Sender: FDA-Public Use
  Company Number: US-ABBOTT-12P-163-0968870-00

PATIENT
  Age: 46 Year
  Sex: Female

DRUGS (7)
  1. HUMIRA 40 MG/0.8 ML PEN [Suspect]
     Indication: RHEUMATOID ARTHRITIS
     Dates: start: 201206
  2. VICODIN [Suspect]
     Indication: PAIN
     Dates: start: 201206
  3. TIZANIDINE [Concomitant]
     Indication: FIBROMYALGIA
     Dosage: DAILY
  4. ELAVIL [Concomitant]
     Indication: FIBROMYALGIA
     Dosage: DAILY
  5. SULINDAC [Concomitant]
     Indication: RHEUMATOID ARTHRITIS
     Dosage: DAILY
  6. METOPROLOL [Concomitant]
     Indication: HYPERTENSION
     Dosage: DAILY
  7. LISINOPRIL [Concomitant]
     Indication: PRODUCT USED FOR UNKNOWN INDICATION

REACTIONS (2)
  - Nausea [Not Recovered/Not Resolved]
  - Vomiting [Not Recovered/Not Resolved]
